FAERS Safety Report 23916465 (Version 1)
Quarter: 2024Q2

REPORT INFORMATION
  Report Type: Spontaneous
  Country: CN (occurrence: CN)
  Receive Date: 20240529
  Receipt Date: 20240529
  Transmission Date: 20240716
  Serious: Yes (Other)
  Sender: FDA-Public Use
  Company Number: CN-FreseniusKabi-FK202408290

PATIENT
  Age: 21 Year
  Sex: Female
  Weight: 55 kg

DRUGS (4)
  1. PROPOFOL [Suspect]
     Active Substance: PROPOFOL
     Indication: Induction of anaesthesia
     Dosage: FORM OF ADMIN-INJECTION FOR INFUSION
     Route: 042
     Dates: start: 20240419, end: 20240419
  2. PROPOFOL [Suspect]
     Active Substance: PROPOFOL
     Dosage: FORM OF ADMIN-INJECTION FOR INFUNSION
     Route: 042
     Dates: start: 20240419, end: 20240419
  3. FLURBIPROFEN AXETIL [Suspect]
     Active Substance: FLURBIPROFEN AXETIL
     Indication: Induction of anaesthesia
     Dosage: FOA-INJECTION
     Route: 042
     Dates: start: 20240419, end: 20240419
  4. BUTORPHANOL TARTRATE [Suspect]
     Active Substance: BUTORPHANOL TARTRATE
     Indication: Induction of anaesthesia
     Dosage: FOA-INJECTION
     Route: 042
     Dates: start: 20240419, end: 20240419

REACTIONS (4)
  - Dyspnoea [Recovered/Resolved]
  - Paralysis [Recovered/Resolved]
  - Tremor [Recovered/Resolved]
  - Hypoaesthesia [Recovered/Resolved]

NARRATIVE: CASE EVENT DATE: 20240419
